FAERS Safety Report 7992548-8 (Version None)
Quarter: 2011Q4

REPORT INFORMATION
  Report Type: 
  Country: None (occurrence: None)
  Receive Date: 20111219
  Receipt Date: 20111214
  Transmission Date: 20120403
  Serious: Yes (Hospitalization)
  Sender: FDA-Public Use
  Company Number: PHHO2011RO019009

PATIENT
  Sex: Female
  Weight: 60 kg

DRUGS (11)
  1. COPEGUS [Suspect]
     Dosage: 200 MG, 3 EP/DAY
     Route: 048
     Dates: start: 20111107, end: 20111111
  2. LEVOTHYROXINE SODIUM [Concomitant]
     Indication: HYPOTHYROIDISM
     Dosage: UNK
     Dates: start: 20111109, end: 20111110
  3. FENOFIBRATE [Concomitant]
     Indication: HYPERGLYCAEMIA
     Dosage: 160 MG, QD
     Route: 048
     Dates: start: 20111109, end: 20111110
  4. BLINDED DEB025 [Suspect]
     Indication: HEPATITIS C
     Dosage: DOUBLE BLINDED
     Route: 048
     Dates: start: 20110811, end: 20111111
  5. OMEPRAZOLE [Concomitant]
     Indication: ABDOMINAL PAIN UPPER
     Dosage: UNK
     Dates: start: 20111003, end: 20111110
  6. IRBESARTAN [Concomitant]
     Indication: HYPERTENSION
     Dosage: UNK
     Dates: start: 20110908, end: 20111111
  7. COPEGUS [Suspect]
     Indication: HEPATITIS C
     Dosage: 200 MG, 5 EP/DAY
     Route: 048
     Dates: start: 20110811, end: 20111106
  8. FENOFIBRATE [Concomitant]
     Indication: HYPERTRIGLYCERIDAEMIA
     Dosage: UNK
     Dates: start: 20111109, end: 20111110
  9. PEGASYS [Suspect]
     Indication: HEPATITIS C
     Dosage: 180 UG, QW
     Route: 058
     Dates: start: 20110811, end: 20111110
  10. BLINDED NO TREATMENT RECEIVED [Suspect]
     Indication: HEPATITIS C
     Dosage: DOUBLE BLINDED
     Route: 048
     Dates: start: 20110811, end: 20111111
  11. BLINDED PLACEBO [Suspect]
     Indication: HEPATITIS C
     Dosage: DOUBLE BLINDED
     Route: 048
     Dates: start: 20110811, end: 20111111

REACTIONS (1)
  - HYPERLIPASAEMIA [None]
